FAERS Safety Report 13309695 (Version 1)
Quarter: 2017Q1

REPORT INFORMATION
  Report Type: Spontaneous
  Country: US (occurrence: US)
  Receive Date: 20170309
  Receipt Date: 20170309
  Transmission Date: 20170428
  Serious: No
  Sender: FDA-Public Use
  Company Number: None

PATIENT
  Age: 69 Year
  Sex: Male
  Weight: 71.1 kg

DRUGS (10)
  1. CALCIUM [Concomitant]
     Active Substance: CALCIUM
  2. XGEVA [Suspect]
     Active Substance: DENOSUMAB
     Indication: BONE CANCER METASTATIC
     Dosage: ?          OTHER FREQUENCY:EVERY 28 DAYS;?
     Route: 058
  3. NULASTA [Concomitant]
  4. PROBIOTIC [Concomitant]
     Active Substance: PROBIOTICS NOS
  5. VITAMIN D3 [Concomitant]
     Active Substance: CHOLECALCIFEROL
  6. LUPRON [Concomitant]
     Active Substance: LEUPROLIDE ACETATE
  7. VITAMIN E [Concomitant]
     Active Substance: .ALPHA.-TOCOPHEROL
  8. FENTANYL. [Concomitant]
     Active Substance: FENTANYL
  9. DEXAMETHASONE. [Concomitant]
     Active Substance: DEXAMETHASONE
  10. JEVTANA [Concomitant]
     Active Substance: CABAZITAXEL

REACTIONS (3)
  - Paraesthesia oral [None]
  - Hypoaesthesia [None]
  - Paraesthesia [None]

NARRATIVE: CASE EVENT DATE: 20170308
